FAERS Safety Report 20563866 (Version 4)
Quarter: 2022Q1

REPORT INFORMATION
  Report Type: Spontaneous
  Country: DE (occurrence: DE)
  Receive Date: 20220308
  Receipt Date: 20220328
  Transmission Date: 20220423
  Serious: Yes (Hospitalization, Other)
  Sender: FDA-Public Use
  Company Number: DE-STADA-243219

PATIENT
  Age: 69 Year
  Sex: Male
  Weight: 101 kg

DRUGS (5)
  1. CLOPIDOGREL [Suspect]
     Active Substance: CLOPIDOGREL BISULFATE
     Indication: Anticoagulant therapy
     Dosage: UNK (EVERY WEEK)
     Route: 048
     Dates: start: 201804, end: 20200327
  2. PHENPROCOUMON [Suspect]
     Active Substance: PHENPROCOUMON
     Indication: Anticoagulant therapy
     Dosage: UNK (4 YEARS)
     Route: 048
     Dates: start: 2016, end: 20200327
  3. SEMAGLUTIDE [Suspect]
     Active Substance: SEMAGLUTIDE
     Indication: Type 2 diabetes mellitus
     Dosage: 1 DOSAGE FORM, EVERY WEEK (1.34 MG/ML PDS290, PLACEBO PDS290)
     Route: 058
     Dates: start: 20191223
  4. ASPIRIN [Concomitant]
     Active Substance: ASPIRIN
     Indication: Product used for unknown indication
     Dosage: UNK
     Route: 065
  5. FERRO-SANOL DUODENAL [Concomitant]
     Active Substance: FERROUS GLYCINE SULFATE
     Indication: Product used for unknown indication
     Dosage: UNK
     Route: 065

REACTIONS (9)
  - Intestinal haemorrhage [Unknown]
  - Melaena [Recovered/Resolved]
  - Hiatus hernia [Not Recovered/Not Resolved]
  - Diverticulum [Not Recovered/Not Resolved]
  - Iron deficiency anaemia [Recovered/Resolved]
  - Large intestine polyp [Not Recovered/Not Resolved]
  - Gingival bleeding [Recovered/Resolved]
  - Small intestine polyp [Not Recovered/Not Resolved]
  - Periodontitis [Unknown]

NARRATIVE: CASE EVENT DATE: 20200322
